FAERS Safety Report 18473736 (Version 1)
Quarter: 2020Q4

REPORT INFORMATION
  Report Type: Spontaneous
  Country: US (occurrence: US)
  Receive Date: 20201106
  Receipt Date: 20201106
  Transmission Date: 20210114
  Serious: Yes (Other)
  Sender: FDA-Public Use
  Company Number: None

PATIENT
  Age: 80 Year
  Sex: Male
  Weight: 89.1 kg

DRUGS (14)
  1. CALCIUM + D3 600-200MG [Concomitant]
  2. AMLODIPINE [Concomitant]
     Active Substance: AMLODIPINE BESYLATE
  3. BACLOFEN. [Concomitant]
     Active Substance: BACLOFEN
  4. ABIRATERONE. [Suspect]
     Active Substance: ABIRATERONE ACETATE
     Indication: PROSTATE CANCER
     Route: 048
     Dates: start: 20180221
  5. MULTIVITAMIN [Concomitant]
     Active Substance: VITAMINS
  6. ASPIRIN 81 [Concomitant]
     Active Substance: ASPIRIN
  7. BISOPROLOL 5 MG [Concomitant]
     Active Substance: BISOPROLOL
  8. LOTREL 5-20 MG [Concomitant]
  9. CEPHALAXIN 500MG [Concomitant]
  10. GLIPIZIDE XL 2.5 MG [Concomitant]
  11. OMEGA-3 1000MG [Concomitant]
  12. TAMSULOSIN 0.4MG [Concomitant]
     Active Substance: TAMSULOSIN
  13. WAFARIN 3MG [Concomitant]
  14. BICALUTAMIDE 50 MG [Concomitant]
     Active Substance: BICALUTAMIDE

REACTIONS (1)
  - Disease progression [None]

NARRATIVE: CASE EVENT DATE: 20201106
